FAERS Safety Report 9226464 (Version 3)
Quarter: 2013Q2

REPORT INFORMATION
  Report Type: Spontaneous
  Country: US (occurrence: US)
  Receive Date: 20130411
  Receipt Date: 20130531
  Transmission Date: 20140414
  Serious: No
  Sender: FDA-Public Use
  Company Number: US-009507513-1304USA002299

PATIENT
  Sex: Female

DRUGS (2)
  1. NEXPLANON [Suspect]
     Indication: CONTRACEPTION
     Dosage: UNK
     Route: 059
     Dates: start: 20130403
  2. LIDOCAINE [Suspect]
     Dosage: UNK
     Dates: start: 20130403, end: 20130403

REACTIONS (4)
  - Device difficult to use [Unknown]
  - Product quality issue [Unknown]
  - Medical device complication [Unknown]
  - No adverse event [Unknown]
